FAERS Safety Report 10143631 (Version 1)
Quarter: 2014Q2

REPORT INFORMATION
  Report Type: Spontaneous
  Country: US (occurrence: US)
  Receive Date: 20140430
  Receipt Date: 20140430
  Transmission Date: 20141212
  Serious: No
  Sender: FDA-Public Use
  Company Number: US-PFIZER INC-2014118017

PATIENT
  Age: 54 Year
  Sex: Female
  Weight: 56.24 kg

DRUGS (1)
  1. PREMARIN [Suspect]
     Indication: HORMONE REPLACEMENT THERAPY
     Dosage: 0.03 MG, DAILY
     Dates: start: 1982

REACTIONS (2)
  - Crying [Recovered/Resolved]
  - Nasal congestion [Recovered/Resolved]
